FAERS Safety Report 8889960 (Version 2)
Quarter: 2012Q4

REPORT INFORMATION
  Report Type: 
  Country: US (occurrence: US)
  Receive Date: 20121107
  Receipt Date: 20121123
  Transmission Date: 20130627
  Serious: No
  Sender: FDA-Public Use
  Company Number: US-PFIZER INC-2012273947

PATIENT
  Age: 74 Year
  Sex: Female

DRUGS (7)
  1. AMLODIPINE BESILATE [Suspect]
     Dosage: 2.5 mg, UNK
     Dates: end: 201206
  2. AMLODIPINE BESILATE [Suspect]
     Dosage: 5 mg, UNK
  3. NIACIN [Suspect]
     Indication: HIGH CHOLESTEROL
     Dosage: 1000 mg, 1x/day ( 500mg tablets, two tablets orally once daily) (qd)
     Route: 048
  4. NIACIN [Suspect]
     Dosage: 500 mg, alternate day (One tablet every other day)
     Route: 048
  5. FISH OIL [Concomitant]
     Dosage: UNK
  6. CALCIUM CITRATE [Concomitant]
     Dosage: UNK
  7. BABY ASPIRIN [Concomitant]
     Dosage: UNK

REACTIONS (2)
  - Rash pruritic [Not Recovered/Not Resolved]
  - Dermatitis [Not Recovered/Not Resolved]
